FAERS Safety Report 13464486 (Version 1)
Quarter: 2017Q2

REPORT INFORMATION
  Report Type: Spontaneous
  Country: US (occurrence: US)
  Receive Date: 20170420
  Receipt Date: 20170420
  Transmission Date: 20170830
  Serious: Yes (Other)
  Sender: FDA-Public Use
  Company Number: US-ROCHE-663812

PATIENT
  Age: 22 Year
  Sex: Male
  Weight: 81.6 kg

DRUGS (3)
  1. ACCUTANE [Suspect]
     Active Substance: ISOTRETINOIN
     Indication: ACNE
     Route: 065
  2. ACCUTANE [Suspect]
     Active Substance: ISOTRETINOIN
     Route: 065
     Dates: start: 20021028, end: 200211
  3. PREVACID [Concomitant]
     Active Substance: LANSOPRAZOLE
     Indication: ULCER
     Route: 065

REACTIONS (4)
  - Crohn^s disease [Unknown]
  - Dry skin [Unknown]
  - Inflammatory bowel disease [Unknown]
  - Depression [Unknown]

NARRATIVE: CASE EVENT DATE: 20021028
